FAERS Safety Report 7608953-5 (Version None)
Quarter: 2011Q3

REPORT INFORMATION
  Report Type: 
  Country: None (occurrence: None)
  Receive Date: 20110714
  Receipt Date: 20110707
  Transmission Date: 20111222
  Serious: Yes (Other)
  Sender: FDA-Public Use
  Company Number: US-GLAXOSMITHKLINE-A0936715A

PATIENT
  Age: 65 Year
  Sex: Female
  Weight: 69.5 kg

DRUGS (5)
  1. CHANTIX [Suspect]
     Indication: SMOKING CESSATION THERAPY
     Dosage: .5MG PER DAY
     Route: 048
     Dates: start: 20110501
  2. SPIRIVA [Suspect]
     Indication: CHRONIC OBSTRUCTIVE PULMONARY DISEASE
     Route: 065
     Dates: start: 20101101
  3. BONIVA [Concomitant]
     Indication: OSTEOPOROSIS
     Dosage: 1TAB MONTHLY
     Dates: start: 20110301
  4. ADVAIR DISKUS 100/50 [Suspect]
     Indication: CHRONIC OBSTRUCTIVE PULMONARY DISEASE
     Route: 065
     Dates: start: 20101101, end: 20110501
  5. HYDROCHLOROTHIAZIDE [Concomitant]
     Indication: BLOOD PRESSURE ABNORMAL
     Dosage: 25MG UNKNOWN
     Dates: start: 19980101

REACTIONS (5)
  - STRESS [None]
  - ANXIETY [None]
  - CATARACT [None]
  - VISION BLURRED [None]
  - DEPRESSED MOOD [None]
